FAERS Safety Report 5122121-0 (Version None)
Quarter: 2006Q4

REPORT INFORMATION
  Report Type: 
  Country: None (occurrence: None)
  Receive Date: 20061004
  Receipt Date: 20061004
  Transmission Date: 20070319
  Serious: Yes (Other)
  Sender: FDA-Public Use
  Company Number: None

PATIENT
  Sex: Female
  Weight: 58.0604 kg

DRUGS (1)
  1. EFFEXOR [Suspect]
     Indication: PANIC DISORDER
     Dosage: NOW DOWN TO 1/4   37.  ONCE/DAY  ORAL
     Route: 048
     Dates: start: 19950601

REACTIONS (7)
  - CRYING [None]
  - DEPENDENCE [None]
  - HYPERHIDROSIS [None]
  - NAUSEA [None]
  - SEXUAL DYSFUNCTION [None]
  - UNEVALUABLE EVENT [None]
  - WEIGHT DECREASED [None]
